FAERS Safety Report 20799584 (Version 2)
Quarter: 2022Q2

REPORT INFORMATION
  Report Type: Spontaneous
  Country: US (occurrence: US)
  Receive Date: 20220509
  Receipt Date: 20220621
  Transmission Date: 20220721
  Serious: Yes (Death, Life-Threatening, Hospitalization, Other)
  Sender: FDA-Public Use
  Company Number: US-BRISTOL-MYERS SQUIBB COMPANY-2022-028073

PATIENT
  Age: 85 Year
  Sex: Male
  Weight: 68.04 kg

DRUGS (10)
  1. REVLIMID [Suspect]
     Active Substance: LENALIDOMIDE
     Indication: Plasma cell myeloma
     Dosage: DOSE : 5MG;     FREQ : 21 DAYS ON 7 DAYS OFF
     Route: 048
     Dates: start: 202204, end: 202204
  2. FERROUS SULFATE [Concomitant]
     Active Substance: FERROUS SULFATE
     Dosage: TAKE 1 TABLET BY MOUTH TWICE DAILY WITH FOOD,
  3. ACYCLOVIR [Concomitant]
     Active Substance: ACYCLOVIR
     Dosage: TABLET 1 BY MOUTH TWICE DAILY
  4. ALLOPURINOL [Concomitant]
     Active Substance: ALLOPURINOL
     Dosage: TABLET 1 DAILY
  5. TAMSULOSIN HYDROCHLORIDE [Concomitant]
     Active Substance: TAMSULOSIN HYDROCHLORIDE
     Dosage: CAPSULE 1 DAILY,
  6. ATORVASTATIN [Concomitant]
     Active Substance: ATORVASTATIN
  7. FUROSEMIDE [Concomitant]
     Active Substance: FUROSEMIDE
  8. AMLODIPINE BESYLATE [Concomitant]
     Active Substance: AMLODIPINE BESYLATE
  9. METFORMIN [Concomitant]
     Active Substance: METFORMIN HYDROCHLORIDE
  10. INSULIN NOS [Concomitant]
     Active Substance: INSULIN NOS
     Dosage: 26 UNITS OR LESS EVER DAY?ONCE WEEKLY? INFUSION OF UNSPECIFIED? CHEMOTHERAPY POST FIRST? WEEK CHEMOT

REACTIONS (3)
  - Respiratory failure [Fatal]
  - Plasma cell myeloma [Fatal]
  - Acute myocardial infarction [Fatal]
